FAERS Safety Report 17195634 (Version 1)
Quarter: 2020Q1

REPORT INFORMATION
  Report Type: Spontaneous
  Country: US (occurrence: US)
  Receive Date: 20191223
  Receipt Date: 20191223
  Transmission Date: 20200409
  Serious: No
  Sender: FDA-Public Use
  Company Number: None

PATIENT
  Age: 53 Year
  Sex: Female
  Weight: 84.15 kg

DRUGS (2)
  1. FLUTICASONE. [Concomitant]
     Active Substance: FLUTICASONE
  2. XOFLUZA [Suspect]
     Active Substance: BALOXAVIR MARBOXIL
     Indication: INFLUENZA
     Dosage: ?          QUANTITY:2 CAPSULE(S);OTHER FREQUENCY:ONE TIME DOSE;?
     Route: 048
     Dates: start: 20191221, end: 20191221

REACTIONS (1)
  - Migraine [None]

NARRATIVE: CASE EVENT DATE: 20191221
